FAERS Safety Report 7426921-3 (Version None)
Quarter: 2011Q2

REPORT INFORMATION
  Report Type: 
  Country: None (occurrence: None)
  Receive Date: 20110420
  Receipt Date: 20110325
  Transmission Date: 20111010
  Serious: Yes (Other)
  Sender: FDA-Public Use
  Company Number: US-SANOFI-AVENTIS-2011SA023697

PATIENT
  Sex: Male

DRUGS (4)
  1. NOVOLOG [Concomitant]
     Indication: PRODUCT USED FOR UNKNOWN INDICATION
     Route: 065
  2. SOLOSTAR [Suspect]
     Indication: PRODUCT USED FOR UNKNOWN INDICATION
  3. LANTUS [Suspect]
     Indication: PRODUCT USED FOR UNKNOWN INDICATION
     Dosage: DOSE:40 UNIT(S)
     Route: 051
  4. VICTOZA [Concomitant]
     Indication: PRODUCT USED FOR UNKNOWN INDICATION
     Route: 065

REACTIONS (2)
  - DEVICE MALFUNCTION [None]
  - PRODUCT QUALITY ISSUE [None]
